FAERS Safety Report 21742248 (Version 1)
Quarter: 2022Q4

REPORT INFORMATION
  Report Type: Spontaneous
  Country: DE (occurrence: DE)
  Receive Date: 20221216
  Receipt Date: 20221216
  Transmission Date: 20230113
  Serious: Yes (Other)
  Sender: FDA-Public Use
  Company Number: None

PATIENT
  Age: 24 Year
  Sex: Male
  Weight: 63 kg

DRUGS (6)
  1. ELEXACAFTOR\IVACAFTOR\TEZACAFTOR [Suspect]
     Active Substance: ELEXACAFTOR\IVACAFTOR\TEZACAFTOR
     Indication: Cystic fibrosis
     Dosage: 50/75/100MG 2-0-0
     Route: 048
     Dates: start: 20211116
  2. ELEXACAFTOR\IVACAFTOR\TEZACAFTOR [Suspect]
     Active Substance: ELEXACAFTOR\IVACAFTOR\TEZACAFTOR
     Indication: Varices oesophageal
     Dosage: THERAPY TITRATED
     Route: 048
     Dates: start: 20220816, end: 2022
  3. ELEXACAFTOR\IVACAFTOR\TEZACAFTOR [Suspect]
     Active Substance: ELEXACAFTOR\IVACAFTOR\TEZACAFTOR
     Indication: Hepatic cirrhosis
     Dosage: FULL DOSE
     Route: 048
     Dates: start: 202209, end: 20220923
  4. KALYDECO [Suspect]
     Active Substance: IVACAFTOR
     Indication: Cystic fibrosis
     Dosage: 150 MG PM
     Route: 048
     Dates: start: 20211116
  5. KALYDECO [Suspect]
     Active Substance: IVACAFTOR
     Indication: Varices oesophageal
     Dosage: THERAPY TITRATED
     Route: 048
     Dates: start: 20220816, end: 2022
  6. KALYDECO [Suspect]
     Active Substance: IVACAFTOR
     Indication: Hepatic cirrhosis
     Dosage: FULL DOSE
     Route: 048
     Dates: start: 202209, end: 20220923

REACTIONS (5)
  - Ascites [Unknown]
  - Thrombocytopenia [Unknown]
  - Condition aggravated [Unknown]
  - Lymphopenia [Unknown]
  - Epistaxis [Unknown]

NARRATIVE: CASE EVENT DATE: 20220901
